FAERS Safety Report 24157618 (Version 8)
Quarter: 2025Q1

REPORT INFORMATION
  Report Type: Spontaneous
  Country: US (occurrence: US)
  Receive Date: 20240731
  Receipt Date: 20250217
  Transmission Date: 20250408
  Serious: Yes (Other)
  Sender: PFIZER
  Company Number: US-PFIZER INC-PV202400099566

PATIENT
  Age: 61 Year
  Sex: Female

DRUGS (25)
  1. IBRANCE [Suspect]
     Active Substance: PALBOCICLIB
     Indication: Breast cancer female
     Route: 048
     Dates: start: 20240718
  2. IBRANCE [Suspect]
     Active Substance: PALBOCICLIB
     Route: 048
     Dates: start: 20240718
  3. ACYCLOVIR [Concomitant]
     Active Substance: ACYCLOVIR
  4. AMLODIPINE [Concomitant]
     Active Substance: AMLODIPINE BESYLATE
  5. ATORVASTATIN [Concomitant]
     Active Substance: ATORVASTATIN
  6. DULOXETINE [Concomitant]
     Active Substance: DULOXETINE
  7. ELIQUIS [Concomitant]
     Active Substance: APIXABAN
  8. ESTRADIOL [Concomitant]
     Active Substance: ESTRADIOL
  9. FEMARA [Concomitant]
     Active Substance: LETROZOLE
  10. FENOFIBRATE [Concomitant]
     Active Substance: FENOFIBRATE
  11. FERAHEME [Concomitant]
     Active Substance: FERUMOXYTOL NON-STOICHIOMETRIC MAGNETITE
  12. GLIMEPIRIDE [Concomitant]
     Active Substance: GLIMEPIRIDE
  13. KISQALI [Concomitant]
     Active Substance: RIBOCICLIB
  14. LEVOTHYROXINE [Concomitant]
     Active Substance: LEVOTHYROXINE
  15. LOSARTAN [Concomitant]
     Active Substance: LOSARTAN
  16. LOSARTAN POTASSIUM [Concomitant]
     Active Substance: LOSARTAN POTASSIUM
  17. METFORMIN [Concomitant]
     Active Substance: METFORMIN HYDROCHLORIDE
  18. MOUNJARO [Concomitant]
     Active Substance: TIRZEPATIDE
  19. NEBIVOLOL [Concomitant]
     Active Substance: NEBIVOLOL
  20. NITROFURANTOIN [Concomitant]
     Active Substance: NITROFURANTOIN
  21. NIVESTYM [FILGRASTIM] [Concomitant]
  22. ONDANSETRON [Concomitant]
     Active Substance: ONDANSETRON
  23. PROLIA [Concomitant]
     Active Substance: DENOSUMAB
  24. TRAMADOL HCL [Concomitant]
     Active Substance: TRAMADOL HYDROCHLORIDE
  25. TRAMADOL [Concomitant]
     Active Substance: TRAMADOL

REACTIONS (21)
  - Neutropenia [Unknown]
  - Leukopenia [Unknown]
  - Anaemia [Unknown]
  - Fatigue [Unknown]
  - Dizziness [Unknown]
  - Disorientation [Unknown]
  - Headache [Unknown]
  - Amnesia [Unknown]
  - Arthralgia [Unknown]
  - Myalgia [Unknown]
  - Dry skin [Unknown]
  - Nerve injury [Unknown]
  - Alopecia [Unknown]
  - Burning sensation [Unknown]
  - Hypoaesthesia [Unknown]
  - Memory impairment [Unknown]
  - Pain [Unknown]
  - Paraesthesia [Unknown]
  - Nausea [Unknown]
  - Dyspnoea [Unknown]
  - Vomiting [Unknown]

NARRATIVE: CASE EVENT DATE: 20240101
